FAERS Safety Report 13843269 (Version 2)
Quarter: 2017Q4

REPORT INFORMATION
  Report Type: Spontaneous
  Country: JP (occurrence: JP)
  Receive Date: 20170808
  Receipt Date: 20171010
  Transmission Date: 20180320
  Serious: No
  Sender: FDA-Public Use
  Company Number: JP-SHIRE-JP201716246

PATIENT
  Age: 12 Year
  Sex: Male

DRUGS (12)
  1. CONCERTA [Concomitant]
     Active Substance: METHYLPHENIDATE HYDROCHLORIDE
     Indication: ATTENTION DEFICIT/HYPERACTIVITY DISORDER
  2. STRATTERA [Concomitant]
     Active Substance: ATOMOXETINE HYDROCHLORIDE
     Dosage: 25 MG, 1X/DAY:QD (ADMINISTERED FOR 20 DAYS)
     Route: 048
     Dates: start: 20161004
  3. STRATTERA [Concomitant]
     Active Substance: ATOMOXETINE HYDROCHLORIDE
     Dosage: 45 MG, 1X/DAY:QD (ADMINISTERED FOR 20 DAYS)
     Route: 048
     Dates: start: 20161004
  4. LIMAS [Concomitant]
     Active Substance: LITHIUM CARBONATE
     Indication: ATTENTION DEFICIT/HYPERACTIVITY DISORDER
     Dosage: 2 MG, 1X/DAY:QD
     Route: 048
     Dates: start: 20170310
  5. STRATTERA [Concomitant]
     Active Substance: ATOMOXETINE HYDROCHLORIDE
     Dosage: 60 MG, 1X/DAY:QD (ADMINISTERED FOR 20 DAYS)
     Route: 048
     Dates: start: 20161004
  6. ABILIFY [Concomitant]
     Active Substance: ARIPIPRAZOLE
     Dosage: 3 MG, 1X/DAY:QD
     Route: 048
     Dates: start: 20170209
  7. STRATTERA [Concomitant]
     Active Substance: ATOMOXETINE HYDROCHLORIDE
     Indication: ATTENTION DEFICIT/HYPERACTIVITY DISORDER
     Dosage: 15 MG, 1X/DAY:QD (ADMINISTERED FOR 20 DAYS)
     Route: 048
     Dates: start: 20161004
  8. ABILIFY [Concomitant]
     Active Substance: ARIPIPRAZOLE
     Indication: TIC
     Dosage: 1.5 MG, 1X/DAY:QD
     Dates: start: 20161202
  9. ABILIFY [Concomitant]
     Active Substance: ARIPIPRAZOLE
     Dosage: 6 MG, 1X/DAY:QD
     Route: 048
     Dates: start: 20170705
  10. INTUNIV [Suspect]
     Active Substance: GUANFACINE HYDROCHLORIDE
     Indication: ATTENTION DEFICIT/HYPERACTIVITY DISORDER
     Dosage: 1 MG, 1X/DAY:QD
     Route: 048
     Dates: start: 20170621, end: 20170624
  11. STRATTERA [Concomitant]
     Active Substance: ATOMOXETINE HYDROCHLORIDE
     Dosage: 65 MG, 1X/DAY:QD
     Route: 048
     Dates: start: 20170310
  12. CONCERTA [Concomitant]
     Active Substance: METHYLPHENIDATE HYDROCHLORIDE
     Indication: TIC
     Dosage: 18 MG, 1X/DAY:QD
     Route: 065
     Dates: start: 20160404, end: 201610

REACTIONS (1)
  - Tic [Not Recovered/Not Resolved]

NARRATIVE: CASE EVENT DATE: 20170627
